FAERS Safety Report 13997284 (Version 1)
Quarter: 2017Q3

REPORT INFORMATION
  Report Type: Spontaneous
  Country: US (occurrence: US)
  Receive Date: 20170921
  Receipt Date: 20170921
  Transmission Date: 20171128
  Serious: No
  Sender: FDA-Public Use
  Company Number: US-ALLERGAN-1727666US

PATIENT
  Sex: Male

DRUGS (4)
  1. LASTACAFT [Suspect]
     Active Substance: ALCAFTADINE
     Indication: CONJUNCTIVITIS ALLERGIC
     Dosage: UNK, QD
     Route: 047
     Dates: start: 201704, end: 201705
  2. LASTACAFT [Suspect]
     Active Substance: ALCAFTADINE
     Dosage: UNK, QD
     Route: 047
     Dates: start: 201611
  3. LOTEMAX [Concomitant]
     Active Substance: LOTEPREDNOL ETABONATE
  4. LASTACAFT [Suspect]
     Active Substance: ALCAFTADINE
     Dosage: UNK, QD
     Route: 047
     Dates: start: 20170626, end: 20170626

REACTIONS (6)
  - Eye swelling [Not Recovered/Not Resolved]
  - Erythema of eyelid [Not Recovered/Not Resolved]
  - Eyelid margin crusting [Not Recovered/Not Resolved]
  - Dermatitis [Not Recovered/Not Resolved]
  - Conjunctival hyperaemia [Not Recovered/Not Resolved]
  - Physical product label issue [Unknown]

NARRATIVE: CASE EVENT DATE: 201704
